FAERS Safety Report 7604687-1 (Version None)
Quarter: 2011Q3

REPORT INFORMATION
  Report Type: 
  Country: None (occurrence: None)
  Receive Date: 20110712
  Receipt Date: 20110706
  Transmission Date: 20111222
  Serious: Yes (Hospitalization)
  Sender: FDA-Public Use
  Company Number: AU-B.I. PHARMACEUTICALS,INC./RIDGEFIELD-2011-AU-00353AU

PATIENT
  Age: 71 Year
  Sex: Male

DRUGS (4)
  1. PRADAXA [Suspect]
     Indication: ATRIAL FIBRILLATION
     Dosage: 300 MG
     Route: 048
     Dates: start: 20110608, end: 20110610
  2. PANADOL OSTEO [Concomitant]
  3. TRAMADOL HCL [Concomitant]
  4. OROXIN [Concomitant]

REACTIONS (4)
  - JOINT SWELLING [None]
  - VOMITING [None]
  - MALAISE [None]
  - ARTHRITIS [None]
